FAERS Safety Report 10081799 (Version 1)
Quarter: 2014Q2

REPORT INFORMATION
  Report Type: Spontaneous
  Country: AU (occurrence: None)
  Receive Date: 20140414
  Receipt Date: 20140414
  Transmission Date: 20141212
  Serious: Yes (Other)
  Sender: FDA-Public Use
  Company Number: 2014P1002901

PATIENT
  Age: 45 Year
  Sex: Male

DRUGS (1)
  1. AMPHETAMINE [Suspect]
     Dosage: X1

REACTIONS (4)
  - Penile abscess [None]
  - Penile oedema [None]
  - Penile vein thrombosis [None]
  - Necrotising fasciitis [None]
